FAERS Safety Report 7022562-0 (Version None)
Quarter: 2010Q3

REPORT INFORMATION
  Report Type: 
  Country: None (occurrence: None)
  Receive Date: 20100930
  Receipt Date: 20100920
  Transmission Date: 20110219
  Serious: Yes (Hospitalization)
  Sender: FDA-Public Use
  Company Number: DE-ALEXION-A201001046

PATIENT

DRUGS (8)
  1. SOLIRIS [Suspect]
     Indication: PAROXYSMAL NOCTURNAL HAEMOGLOBINURIA
     Dosage: 600 MG, UNK
     Route: 042
     Dates: start: 20090801, end: 20100713
  2. SOLIRIS [Suspect]
     Dosage: 600 MG, UNK
     Route: 042
     Dates: start: 20100810
  3. HAEMOPHILUS INFLUENZAE B [Concomitant]
     Dosage: UNK
     Dates: start: 20090703, end: 20090703
  4. EXJADE [Concomitant]
     Indication: HAEMOCHROMATOSIS
     Dosage: 500 MG, BID
     Route: 048
     Dates: start: 20090601
  5. METOPROLOL TARTRATE [Concomitant]
     Indication: HYPERTENSION
     Dosage: 100 MG, QD
     Route: 048
  6. DECORTIN [Concomitant]
     Indication: ANAEMIA HAEMOLYTIC AUTOIMMUNE
     Dosage: 10 MG, QD
     Route: 048
     Dates: start: 20090601
  7. TORASEMID [Concomitant]
     Indication: OEDEMA PERIPHERAL
     Dosage: 10 MG, BID
     Route: 048
     Dates: start: 20100401
  8. CEFUROXIM                          /00454602/ [Concomitant]
     Indication: EPIDIDYMITIS
     Dosage: 500 MG, BID
     Dates: start: 20100723, end: 20100805

REACTIONS (4)
  - ABSCESS [None]
  - EPIDIDYMITIS [None]
  - NECROTISING FASCIITIS [None]
  - ORCHITIS [None]
